FAERS Safety Report 9853541 (Version 1)
Quarter: 2014Q1

REPORT INFORMATION
  Report Type: Report from Study
  Country: DE (occurrence: DE)
  Receive Date: 20140129
  Receipt Date: 20140129
  Transmission Date: 20141002
  Serious: Yes (Hospitalization)
  Sender: FDA-Public Use
  Company Number: DE-PFIZER INC-2012247056

PATIENT
  Age: 71 Year
  Sex: Male
  Weight: 90 kg

DRUGS (11)
  1. IRINOTECAN HCL [Suspect]
     Indication: COLORECTAL CANCER METASTATIC
     Dosage: 165 MG/M2, UNK
     Route: 042
     Dates: start: 20120718, end: 20120912
  2. LEUCOVORIN [Suspect]
     Indication: COLORECTAL CANCER METASTATIC
     Dosage: 200 MG/M2, UNK
     Route: 042
     Dates: start: 20120718, end: 20120912
  3. BEVACIZUMAB [Suspect]
     Indication: COLORECTAL CANCER METASTATIC
     Dosage: 5 MG/KG, UNK
     Route: 042
     Dates: start: 20120718, end: 20120912
  4. OXALIPLATIN [Suspect]
     Indication: COLORECTAL CANCER METASTATIC
     Dosage: 85 MG/M2, UNK
     Route: 042
     Dates: start: 20120718, end: 20120912
  5. FLUOROURACIL [Suspect]
     Indication: COLORECTAL CANCER METASTATIC
     Dosage: 3200 MG/M2, UNK
     Route: 042
     Dates: start: 20120718, end: 20120912
  6. RIVAROXABAN [Concomitant]
     Indication: ANTICOAGULANT THERAPY
     Dosage: 20 MG, 1X/DAY
     Route: 048
  7. BISOPROLOL [Concomitant]
     Indication: HYPERTENSION
     Dosage: 5 MG, 2X/DAY (GIVE HALF TWICE A DAY)
     Route: 048
  8. RAMIPRIL [Concomitant]
     Indication: HYPERTENSION
     Dosage: 5 MG, 2X/DAY (GIVE HALF TWICE A DAY)
     Route: 048
  9. ACETYLDIGITOXIN [Concomitant]
     Dosage: 0.2 MG, UNK
  10. SIMVASTATIN [Concomitant]
     Dosage: 40 MG (DAILY DOSE: 1/2 DF)
  11. HYDROCHLOROTHIAZIDE [Concomitant]

REACTIONS (1)
  - Gastroenteritis [Recovered/Resolved]
